FAERS Safety Report 6112637-2 (Version None)
Quarter: 2009Q1

REPORT INFORMATION
  Report Type: 
  Country: None (occurrence: None)
  Receive Date: 20090312
  Receipt Date: 20090303
  Transmission Date: 20090719
  Serious: Yes (Other)
  Sender: FDA-Public Use
  Company Number: CA-BAYER-200910278NA

PATIENT
  Age: 34 Year
  Sex: Female
  Weight: 70 kg

DRUGS (5)
  1. MIRENA [Suspect]
     Indication: ENDOMETRIOSIS
     Route: 015
     Dates: start: 20080221, end: 20080601
  2. LUPRON [Suspect]
     Indication: ENDOMETRIOSIS
     Route: 048
  3. ATROVENT [Concomitant]
  4. NASONEX [Concomitant]
     Indication: DRUG USE FOR UNKNOWN INDICATION
  5. REACTINE [Concomitant]
     Indication: DRUG USE FOR UNKNOWN INDICATION

REACTIONS (12)
  - ABDOMINAL PAIN [None]
  - ACNE [None]
  - BACK PAIN [None]
  - DEPRESSION [None]
  - IRRITABILITY [None]
  - LIBIDO DECREASED [None]
  - MIGRAINE [None]
  - MOOD ALTERED [None]
  - PALPITATIONS [None]
  - SINUSITIS [None]
  - SYNCOPE [None]
  - WEIGHT INCREASED [None]
